FAERS Safety Report 5335331-4 (Version None)
Quarter: 2007Q2

REPORT INFORMATION
  Report Type: 
  Country: None (occurrence: None)
  Receive Date: 20070525
  Receipt Date: 20070517
  Transmission Date: 20071010
  Serious: Yes (Other)
  Sender: FDA-Public Use
  Company Number: BR-PFIZER INC-2007037217

PATIENT
  Sex: Female

DRUGS (2)
  1. FELDENE [Suspect]
     Indication: ABDOMINAL PAIN
  2. DEXAMETHASONE [Suspect]
     Indication: DYSMENORRHOEA

REACTIONS (5)
  - DYSMENORRHOEA [None]
  - GALLBLADDER OPERATION [None]
  - GASTRITIS [None]
  - OEDEMA [None]
  - VARICOSE VEIN [None]
